FAERS Safety Report 21667774 (Version 2)
Quarter: 2023Q1

REPORT INFORMATION
  Report Type: Spontaneous
  Country: US (occurrence: US)
  Receive Date: 20221201
  Receipt Date: 20230310
  Transmission Date: 20230417
  Serious: Yes (Other)
  Sender: FDA-Public Use
  Company Number: US-PFIZER INC-PV202200093535

PATIENT
  Age: 78 Year
  Sex: Male

DRUGS (2)
  1. TIKOSYN [Suspect]
     Active Substance: DOFETILIDE
     Indication: Atrial fibrillation
     Dosage: 500 MG, 2X/DAY
  2. TIKOSYN [Suspect]
     Active Substance: DOFETILIDE
     Dosage: 500 UG, 2X/DAY
     Route: 048
     Dates: start: 2009

REACTIONS (2)
  - Ventricular tachycardia [Recovered/Resolved with Sequelae]
  - Wrong strength [Unknown]

NARRATIVE: CASE EVENT DATE: 20220422
